FAERS Safety Report 13001738 (Version 1)
Quarter: 2016Q4

REPORT INFORMATION
  Report Type: Spontaneous
  Country: US (occurrence: US)
  Receive Date: 20161205
  Receipt Date: 20161205
  Transmission Date: 20170207
  Serious: Yes (Hospitalization)
  Sender: FDA-Public Use
  Company Number: None

PATIENT
  Age: 69 Year
  Sex: Male

DRUGS (7)
  1. VITAMIN D3 [Concomitant]
     Active Substance: CHOLECALCIFEROL
  2. CHOLECALCIFEROL [Concomitant]
     Active Substance: CHOLECALCIFEROL
  3. CLOBETASON (TEMOVATE) [Concomitant]
  4. FEXOFENADINE-PSEUDOEPHEDRINE (ALLEGRA-D) [Concomitant]
  5. REGORAFENIB [Suspect]
     Active Substance: REGORAFENIB
     Indication: COLON CANCER METASTATIC
  6. MUCOSITIS MOUTHWASH-VISCOUS LIDOCAINE [Concomitant]
  7. PHENYLEPHRINE HCL (SUDAFED PE) [Concomitant]

REACTIONS (3)
  - Abdominal pain [None]
  - Constipation [None]
  - Rectal obstruction [None]

NARRATIVE: CASE EVENT DATE: 20161125
